FAERS Safety Report 4284238-2 (Version None)
Quarter: 2004Q1

REPORT INFORMATION
  Report Type: 
  Country: None (occurrence: None)
  Receive Date: 20040203
  Receipt Date: 20031014
  Transmission Date: 20041129
  Serious: Yes (Death, Hospitalization, Other)
  Sender: FDA-Public Use
  Company Number: US-BRISTOL-MYERS SQUIBB COMPANY-12411849

PATIENT
  Age: 77 Year
  Sex: Female

DRUGS (13)
  1. ABILIFY [Suspect]
     Dates: start: 20030307, end: 20030707
  2. ZOLOFT [Concomitant]
  3. ENALAPRIL MALEATE [Concomitant]
  4. FAMOTIDINE [Concomitant]
  5. KLOR-CON [Concomitant]
     Route: 048
  6. CELEBREX [Concomitant]
     Route: 048
  7. CLARINEX [Concomitant]
     Route: 048
  8. CORTEF [Concomitant]
     Route: 048
  9. FUROSEMIDE [Concomitant]
     Route: 048
  10. NORVASC [Concomitant]
     Route: 048
  11. CALCIUM SUPPLEMENT [Concomitant]
     Route: 048
  12. PREVACID [Concomitant]
     Route: 048
  13. HUMULIN 70/30 [Concomitant]
     Dosage: 30 UNITS QAM AND 10 UNITS QPM

REACTIONS (17)
  - ANXIETY [None]
  - CARDIAC ARREST [None]
  - CEREBROVASCULAR ACCIDENT [None]
  - CORONARY ARTERY DISEASE [None]
  - DEHYDRATION [None]
  - DEMENTIA [None]
  - DEMENTIA ALZHEIMER'S TYPE [None]
  - DEPRESSION [None]
  - DYSKINESIA [None]
  - FLAT AFFECT [None]
  - GASTROOESOPHAGEAL REFLUX DISEASE [None]
  - HYPERKALAEMIA [None]
  - HYPERTENSION [None]
  - MENTAL STATUS CHANGES [None]
  - MOBILITY DECREASED [None]
  - PERIPHERAL VASCULAR DISORDER [None]
  - RENAL FAILURE [None]
